FAERS Safety Report 7496151-8 (Version None)
Quarter: 2011Q2

REPORT INFORMATION
  Report Type: 
  Country: None (occurrence: None)
  Receive Date: 20110523
  Receipt Date: 20110509
  Transmission Date: 20111010
  Serious: Yes (Hospitalization)
  Sender: FDA-Public Use
  Company Number: PHHY2011US31632

PATIENT
  Sex: Male

DRUGS (7)
  1. NOROXIN [Concomitant]
  2. CYMBALTA [Concomitant]
     Indication: PAIN
     Dosage: 40 MG
     Route: 048
     Dates: start: 20100510, end: 20110404
  3. NEURONTIN [Concomitant]
     Indication: NEURALGIA
     Dosage: 600 MG, UNK
     Route: 048
     Dates: start: 20100510
  4. CALCIUM WITH VITAMIN D [Concomitant]
  5. RECLAST [Suspect]
     Indication: OSTEOPOROSIS
     Dosage: 5 MG
     Route: 042
     Dates: start: 20110330
  6. ELAVIL [Concomitant]
     Indication: INSOMNIA
     Dosage: 25 MG
     Route: 048
     Dates: start: 20100510, end: 20110404
  7. NORCO [Concomitant]
     Indication: PAIN
     Dosage: 1 DF, PRN

REACTIONS (23)
  - CHILLS [None]
  - DIARRHOEA [None]
  - RED BLOOD CELLS URINE POSITIVE [None]
  - ORTHOPNOEA [None]
  - PAIN [None]
  - URINARY RETENTION [None]
  - DEHYDRATION [None]
  - PAIN IN EXTREMITY [None]
  - ARTHRALGIA [None]
  - PYREXIA [None]
  - RESPIRATORY TRACT CONGESTION [None]
  - DYSPNOEA [None]
  - BACK PAIN [None]
  - HYPERHIDROSIS [None]
  - DECREASED APPETITE [None]
  - PYELONEPHRITIS ACUTE [None]
  - BLADDER DYSFUNCTION [None]
  - URINARY TRACT OBSTRUCTION [None]
  - ASTHENIA [None]
  - WHITE BLOOD CELLS URINE [None]
  - MYALGIA [None]
  - COUGH [None]
  - DIZZINESS [None]
